FAERS Safety Report 8357883-2 (Version None)
Quarter: 2012Q2

REPORT INFORMATION
  Report Type: 
  Country: None (occurrence: None)
  Receive Date: 20120514
  Receipt Date: 20120503
  Transmission Date: 20120825
  Serious: Yes (Other)
  Sender: FDA-Public Use
  Company Number: US-ELI_LILLY_AND_COMPANY-US201205000620

PATIENT
  Sex: Female
  Weight: 49.887 kg

DRUGS (10)
  1. OLANZAPINE [Suspect]
     Dosage: 300 MG, UNK
     Route: 030
     Dates: start: 20120116
  2. TRAZODONE HCL [Concomitant]
     Indication: MOOD ALTERED
  3. OLANZAPINE [Suspect]
     Dosage: 300 MG, UNK
     Route: 030
     Dates: start: 20120213
  4. OLANZAPINE [Suspect]
     Dosage: 300 MG, UNK
     Route: 030
     Dates: start: 20120430
  5. OLANZAPINE [Suspect]
     Dosage: 405 MG, UNK
     Route: 030
     Dates: start: 20120409
  6. COGENTIN [Concomitant]
     Indication: ADVERSE DRUG REACTION
     Dosage: 1 MG, BID
  7. OLANZAPINE [Suspect]
     Dosage: 300 MG, UNK
     Route: 030
     Dates: start: 20120227
  8. KEPPRA [Concomitant]
     Indication: MOOD ALTERED
     Dosage: 750 MG, BID
  9. OLANZAPINE [Suspect]
     Dosage: 405 MG, UNK
     Route: 030
     Dates: start: 20120312
  10. OLANZAPINE [Suspect]
     Dosage: 300 MG, UNK
     Route: 030
     Dates: start: 20120130

REACTIONS (12)
  - DISORIENTATION [None]
  - TACHYCARDIA [None]
  - AGITATION [None]
  - ANXIETY [None]
  - CONFUSIONAL STATE [None]
  - GAIT DISTURBANCE [None]
  - EYE DISORDER [None]
  - DEPRESSED LEVEL OF CONSCIOUSNESS [None]
  - DYSARTHRIA [None]
  - SEDATION [None]
  - AGGRESSION [None]
  - DELIRIUM [None]
